FAERS Safety Report 8105213-3 (Version None)
Quarter: 2011Q4

REPORT INFORMATION
  Report Type: 
  Country: None (occurrence: None)
  Receive Date: 20111222
  Receipt Date: 20111102
  Transmission Date: 20120403
  Serious: Yes (Disabling)
  Sender: FDA-Public Use
  Company Number: UTC-011952

PATIENT
  Age: 57 Year
  Sex: Female
  Weight: 85.9 kg

DRUGS (3)
  1. OXYGEN ( OXYGEN) [Concomitant]
  2. TYVASO [Suspect]
     Indication: PULMONARY ARTERIAL HYPERTENSION
     Dosage: 216 MCG (54 MCG, 4 IN 1 D), INHALATION
     Route: 055
     Dates: start: 20110725
  3. DIURETICS (DIURETICS) [Concomitant]

REACTIONS (1)
  - LIPOMA [None]
